FAERS Safety Report 24706681 (Version 4)
Quarter: 2025Q1

REPORT INFORMATION
  Report Type: Spontaneous
  Country: JP (occurrence: JP)
  Receive Date: 20241206
  Receipt Date: 20250310
  Transmission Date: 20250408
  Serious: Yes (Death, Other)
  Sender: CSL BEHRING
  Company Number: JP-BEH-2024186786

PATIENT
  Age: 69 Year
  Sex: Female

DRUGS (7)
  1. ALBUMINAR-25 [Suspect]
     Active Substance: ALBUMIN HUMAN
     Indication: Product used for unknown indication
     Route: 065
     Dates: start: 20240606
  2. ALBUMINAR-25 [Suspect]
     Active Substance: ALBUMIN HUMAN
     Route: 065
     Dates: start: 20240806
  3. ALBUMINAR-25 [Suspect]
     Active Substance: ALBUMIN HUMAN
     Route: 065
     Dates: start: 20240820
  4. ALBUMINAR-25 [Suspect]
     Active Substance: ALBUMIN HUMAN
     Route: 065
     Dates: start: 20241126
  5. ALBUMINAR-25 [Suspect]
     Active Substance: ALBUMIN HUMAN
     Route: 065
     Dates: start: 20241127
  6. ALBUMINAR-25 [Suspect]
     Active Substance: ALBUMIN HUMAN
     Route: 065
     Dates: start: 20241202
  7. ALBUMIN HUMAN [Suspect]
     Active Substance: ALBUMIN HUMAN
     Indication: Product used for unknown indication
     Route: 065

REACTIONS (25)
  - Haemolytic anaemia [Fatal]
  - Poikilocytosis [Fatal]
  - Hepatic cirrhosis [Fatal]
  - Myelodysplastic syndrome [Fatal]
  - Haemophagocytic lymphohistiocytosis [Fatal]
  - Splenomegaly [Fatal]
  - Platelet count decreased [Fatal]
  - Normocytic anaemia [Fatal]
  - Hypergammaglobulinaemia [Fatal]
  - Hepatitis alcoholic [Fatal]
  - Proteinuria [Fatal]
  - Hyperlipidaemia [Fatal]
  - Oedema [Fatal]
  - Hypoalbuminaemia [Fatal]
  - Urinary occult blood positive [Fatal]
  - Blood uric acid increased [Fatal]
  - Haemochromatosis [Fatal]
  - Biliary dilatation [Fatal]
  - Pancreatic duct dilatation [Fatal]
  - Pancreatic cyst [Fatal]
  - Cystitis haemorrhagic [Fatal]
  - Computerised tomogram pelvis abnormal [Fatal]
  - Subcutaneous haematoma [Fatal]
  - Terminal state [Unknown]
  - Blood albumin decreased [Unknown]
